FAERS Safety Report 4423493-2 (Version None)
Quarter: 2004Q3

REPORT INFORMATION
  Report Type: 
  Country: None (occurrence: None)
  Receive Date: 20040811
  Receipt Date: 20040714
  Transmission Date: 20050211
  Serious: Yes (Hospitalization)
  Sender: FDA-Public Use
  Company Number: PHBS2004JP09393

PATIENT
  Age: 57 Year
  Sex: Female

DRUGS (10)
  1. TEGRETOL [Suspect]
     Indication: DEPRESSION
     Dosage: 200 MG/DAY
     Route: 048
     Dates: start: 20031101, end: 20040103
  2. TELESMIN [Suspect]
     Dosage: 250 MG/DAY
     Route: 048
     Dates: start: 20031101, end: 20040103
  3. ALPRAZOLAM [Concomitant]
     Dosage: 0.4 MG/DAY
     Route: 048
     Dates: start: 20030524, end: 20040103
  4. LIPITOR [Concomitant]
     Dosage: 10 MG
     Route: 048
  5. HIBERNA [Concomitant]
     Dosage: 35 MG
     Route: 048
  6. SOMELIN [Concomitant]
     Dosage: 5 MG
     Route: 048
  7. EURODIN [Concomitant]
     Dosage: 2 MG
     Route: 048
  8. LINTON [Concomitant]
     Dosage: 1.5 MG
     Route: 048
  9. ALOSENN [Concomitant]
     Dosage: 1 G
     Route: 048
  10. CENNARIDE [Concomitant]
     Dosage: 24 MG
     Route: 048

REACTIONS (8)
  - ACUTE GENERALISED EXANTHEMATOUS PUSTULOSIS [None]
  - BLOOD IMMUNOGLOBULIN G INCREASED [None]
  - DRUG HYPERSENSITIVITY [None]
  - PHARYNGOLARYNGEAL PAIN [None]
  - PYREXIA [None]
  - RASH [None]
  - SKIN TEST POSITIVE [None]
  - STOMATITIS [None]
